FAERS Safety Report 8662687 (Version 2)
Quarter: 2012Q4

REPORT INFORMATION
  Report Type: 
  Country: FI (occurrence: FI)
  Receive Date: 20120712
  Receipt Date: 20121009
  Transmission Date: 20130627
  Serious: Yes (Other)
  Sender: FDA-Public Use
  Company Number: FI-ELI_LILLY_AND_COMPANY-FI201207001254

PATIENT
  Age: 72 Year
  Sex: Female

DRUGS (6)
  1. FORSTEO [Suspect]
     Indication: OSTEOPOROSIS
     Dosage: 20 ug, qd
     Route: 058
     Dates: start: 20110201
  2. IDEOS [Concomitant]
     Indication: MEDICAL DIET
     Dosage: UNK
  3. MAGNESIUM [Concomitant]
     Dosage: UNK
  4. PANADOL [Concomitant]
     Indication: PAIN
     Dosage: UNK
  5. LEVOLAC [Concomitant]
     Dosage: UNK
  6. PRIMASPAN [Concomitant]

REACTIONS (6)
  - Uterine neoplasm [Unknown]
  - Asthenia [Not Recovered/Not Resolved]
  - Pain in extremity [Not Recovered/Not Resolved]
  - Abdominal pain upper [Not Recovered/Not Resolved]
  - Muscular weakness [Not Recovered/Not Resolved]
  - Gastrointestinal disorder [Unknown]
